FAERS Safety Report 4357352-0 (Version None)
Quarter: 2004Q2

REPORT INFORMATION
  Report Type: 
  Country: None (occurrence: None)
  Receive Date: 20040511
  Receipt Date: 20040511
  Transmission Date: 20050107
  Serious: Yes (Hospitalization)
  Sender: FDA-Public Use
  Company Number: None

PATIENT
  Age: 80 Year
  Sex: Male

DRUGS (5)
  1. PREDNISONE [Suspect]
     Dates: start: 20040209, end: 20040221
  2. ALEVE [Suspect]
     Indication: POST PROCEDURAL PAIN
     Dates: start: 20040229, end: 20040221
  3. ADVIL [Suspect]
  4. ASPIRIN [Suspect]
  5. LISINOPRIL [Concomitant]

REACTIONS (5)
  - ANOREXIA [None]
  - FAECES DISCOLOURED [None]
  - HAEMATEMESIS [None]
  - NAUSEA [None]
  - VOMITING [None]
